FAERS Safety Report 5657342-1 (Version None)
Quarter: 2008Q1

REPORT INFORMATION
  Report Type: 
  Country: None (occurrence: None)
  Receive Date: 20080310
  Receipt Date: 20080228
  Transmission Date: 20080703
  Serious: Yes (Hospitalization)
  Sender: FDA-Public Use
  Company Number: US-JNJFOC-20080300438

PATIENT
  Sex: Female
  Weight: 62 kg

DRUGS (12)
  1. IMODIUM [Suspect]
  2. IMODIUM [Suspect]
     Indication: DIARRHOEA
  3. IRINOTECAN HYDROCHLORIDE [Suspect]
     Route: 042
  4. IRINOTECAN HYDROCHLORIDE [Suspect]
     Indication: BREAST CANCER METASTATIC
     Route: 042
  5. ETOPOSIDE [Suspect]
     Route: 048
  6. ETOPOSIDE [Suspect]
     Indication: BREAST CANCER METASTATIC
     Route: 048
  7. LYRICA [Concomitant]
  8. KYTRIL [Concomitant]
  9. ATIVAN [Concomitant]
  10. ACIPHEX [Concomitant]
     Route: 048
  11. PROZAC [Concomitant]
     Route: 048
  12. LEVOGLUTAMIDE [Concomitant]

REACTIONS (1)
  - FAECALOMA [None]
